FAERS Safety Report 17723727 (Version 1)
Quarter: 2020Q2

REPORT INFORMATION
  Report Type: Spontaneous
  Country: US (occurrence: US)
  Receive Date: 20200429
  Receipt Date: 20200429
  Transmission Date: 20200714
  Serious: Yes (Other)
  Sender: FDA-Public Use
  Company Number: US-ASTRAZENECA-2020SE57233

PATIENT

DRUGS (7)
  1. DEXILANT [Suspect]
     Active Substance: DEXLANSOPRAZOLE
     Indication: GASTROINTESTINAL DISORDER
     Route: 048
  2. PRILOSEC OTC [Suspect]
     Active Substance: OMEPRAZOLE MAGNESIUM
     Indication: GASTROINTESTINAL DISORDER
     Dosage: UNK
     Route: 048
     Dates: start: 200601, end: 201612
  3. NEXIUM 24HR [Suspect]
     Active Substance: ESOMEPRAZOLE MAGNESIUM
     Indication: GASTROINTESTINAL DISORDER
     Route: 048
  4. NEXIUM [Suspect]
     Active Substance: ESOMEPRAZOLE MAGNESIUM
     Indication: GASTROINTESTINAL DISORDER
     Route: 048
  5. PREVACID [Suspect]
     Active Substance: LANSOPRAZOLE
     Indication: GASTROINTESTINAL DISORDER
     Route: 048
  6. PREVACID 24 HR [Suspect]
     Active Substance: LANSOPRAZOLE
     Indication: GASTROINTESTINAL DISORDER
     Route: 048
  7. PROTONIX [Suspect]
     Active Substance: PANTOPRAZOLE SODIUM
     Indication: GASTROINTESTINAL DISORDER
     Route: 048

REACTIONS (6)
  - Pain [Unknown]
  - Rebound effect [Unknown]
  - Drug dependence [Unknown]
  - Chronic kidney disease [Unknown]
  - Acute kidney injury [Unknown]
  - Hyperchlorhydria [Unknown]
